FAERS Safety Report 5342775-3 (Version None)
Quarter: 2007Q2

REPORT INFORMATION
  Report Type: 
  Country: None (occurrence: None)
  Receive Date: 20070601
  Receipt Date: 20070521
  Transmission Date: 20071010
  Serious: Yes (Death, Life-Threatening, Hospitalization, Disabling)
  Sender: FDA-Public Use
  Company Number: US-GILEAD-2007-0012212

PATIENT
  Age: 54 Year
  Sex: Male

DRUGS (7)
  1. TRUVADA [Suspect]
     Indication: HIV INFECTION
  2. PREZISTA [Suspect]
     Indication: HIV INFECTION
     Dates: start: 20070316, end: 20070429
  3. RITONAVIR [Suspect]
     Indication: HIV INFECTION
  4. ENFUVIRTIDE [Suspect]
  5. OXYCODONE HCL [Concomitant]
     Dates: start: 20070205
  6. BACTRIM DS [Concomitant]
     Dates: start: 20061204
  7. EPOETIN ALFA [Concomitant]
     Dates: start: 20070222

REACTIONS (3)
  - ESCHERICHIA SEPSIS [None]
  - PANCYTOPENIA [None]
  - RECTAL HAEMORRHAGE [None]
